FAERS Safety Report 9661876 (Version 1)
Quarter: 2013Q4

REPORT INFORMATION
  Report Type: Spontaneous
  Country: US (occurrence: US)
  Receive Date: 20131031
  Receipt Date: 20131031
  Transmission Date: 20140711
  Serious: No
  Sender: FDA-Public Use
  Company Number: US-PURDUE-USA-2011-0067351

PATIENT
  Sex: Male

DRUGS (2)
  1. OXYCONTIN (NDA 22-272) [Suspect]
     Indication: BACK PAIN
     Dosage: 80 MG, Q6H
     Route: 048
     Dates: start: 201011, end: 201101
  2. OXYCONTIN (NDA 22-272) [Suspect]
     Dosage: 60 MG, Q6H
     Route: 048
     Dates: start: 201103

REACTIONS (5)
  - Chest discomfort [Not Recovered/Not Resolved]
  - Unevaluable event [Not Recovered/Not Resolved]
  - Dyspnoea [Recovered/Resolved]
  - Diarrhoea [Not Recovered/Not Resolved]
  - Inadequate analgesia [Not Recovered/Not Resolved]
